FAERS Safety Report 11383504 (Version 2)
Quarter: 2015Q3

REPORT INFORMATION
  Report Type: Spontaneous
  Country: US (occurrence: US)
  Receive Date: 20150814
  Receipt Date: 20150828
  Transmission Date: 20151125
  Serious: Yes (Life-Threatening, Other)
  Sender: FDA-Public Use
  Company Number: US-ASTRAZENECA-2015SE77402

PATIENT
  Sex: Male

DRUGS (1)
  1. CRESTOR [Suspect]
     Active Substance: ROSUVASTATIN CALCIUM
     Route: 048
     Dates: start: 2007

REACTIONS (6)
  - Coma [Unknown]
  - Myocardial infarction [Unknown]
  - Facial neuralgia [Unknown]
  - Cerebral artery stenosis [Unknown]
  - Head discomfort [Unknown]
  - Road traffic accident [Unknown]

NARRATIVE: CASE EVENT DATE: 2010
